FAERS Safety Report 6748554-4 (Version None)
Quarter: 2010Q2

REPORT INFORMATION
  Report Type: 
  Country: None (occurrence: None)
  Receive Date: 20100601
  Receipt Date: 20100505
  Transmission Date: 20101027
  Serious: Yes (Hospitalization, Other)
  Sender: FDA-Public Use
  Company Number: US-BAYER-201023127NA

PATIENT
  Sex: Female

DRUGS (5)
  1. YASMIN [Suspect]
     Indication: CONTRACEPTION
     Dates: start: 20050101, end: 20050201
  2. YASMIN [Suspect]
     Dates: start: 20060301, end: 20070501
  3. PROZAC [Concomitant]
     Indication: ANTIDEPRESSANT THERAPY
     Dates: start: 20060101, end: 20070101
  4. PROZAC [Concomitant]
     Dates: start: 20080101
  5. TRICYCLIN [Concomitant]
     Indication: CONTRACEPTION
     Dates: start: 20020101, end: 20050101

REACTIONS (6)
  - ARRHYTHMIA [None]
  - BACK PAIN [None]
  - CARDIAC MURMUR [None]
  - CHOLECYSTECTOMY [None]
  - EATING DISORDER [None]
  - PAIN [None]
